FAERS Safety Report 14127697 (Version 1)
Quarter: 2017Q4

REPORT INFORMATION
  Report Type: Spontaneous
  Country: FR (occurrence: FR)
  Receive Date: 20171026
  Receipt Date: 20171026
  Transmission Date: 20180321
  Serious: Yes (Other)
  Sender: FDA-Public Use
  Company Number: FR-MERCK KGAA-2031508

PATIENT
  Age: 71 Year
  Sex: Female
  Weight: 67 kg

DRUGS (1)
  1. NOVOTHYROX [Suspect]
     Active Substance: LEVOTHYROXINE SODIUM
     Indication: HYPOTHYROIDISM
     Route: 048
     Dates: start: 20170807, end: 20170914

REACTIONS (6)
  - Blood thyroid stimulating hormone increased [Not Recovered/Not Resolved]
  - Insomnia [Recovering/Resolving]
  - Gastrointestinal disorder [Recovering/Resolving]
  - Diffuse alopecia [Recovering/Resolving]
  - Muscle spasms [Recovering/Resolving]
  - Dizziness [Recovering/Resolving]

NARRATIVE: CASE EVENT DATE: 20170912
